FAERS Safety Report 11688706 (Version 12)
Quarter: 2017Q3

REPORT INFORMATION
  Report Type: Report from Study
  Country: CA (occurrence: CA)
  Receive Date: 20151102
  Receipt Date: 20170724
  Transmission Date: 20171127
  Serious: Yes (Hospitalization, Other)
  Sender: FDA-Public Use
  Company Number: CA-ROCHE-1629292

PATIENT
  Sex: Male

DRUGS (29)
  1. MIRTAZAPINE. [Concomitant]
     Active Substance: MIRTAZAPINE
  2. TELMISARTAN. [Concomitant]
     Active Substance: TELMISARTAN
  3. ACTEMRA [Suspect]
     Active Substance: TOCILIZUMAB
     Indication: RHEUMATOID ARTHRITIS
     Route: 042
     Dates: start: 20150507
  4. LIPITOR [Concomitant]
     Active Substance: ATORVASTATIN CALCIUM
  5. HYDROXYCHLOROQUINE [Concomitant]
     Active Substance: HYDROXYCHLOROQUINE
  6. RABEPRAZOLE [Concomitant]
     Active Substance: RABEPRAZOLE
  7. HYDRALAZINE [Concomitant]
     Active Substance: HYDRALAZINE HYDROCHLORIDE
  8. CELEBREX [Concomitant]
     Active Substance: CELECOXIB
  9. FOLIC ACID. [Concomitant]
     Active Substance: FOLIC ACID
  10. RISPERDAL [Concomitant]
     Active Substance: RISPERIDONE
  11. ADALAT [Concomitant]
     Active Substance: NIFEDIPINE
  12. METHOTREXATE. [Concomitant]
     Active Substance: METHOTREXATE
  13. DOXAZOSIN [Concomitant]
     Active Substance: DOXAZOSIN\DOXAZOSIN MESYLATE
  14. LISINOPRIL. [Concomitant]
     Active Substance: LISINOPRIL
  15. VOLTAREN [Concomitant]
     Active Substance: DICLOFENAC SODIUM
  16. EFUDEX [Concomitant]
     Active Substance: FLUOROURACIL
  17. ACTEMRA [Suspect]
     Active Substance: TOCILIZUMAB
     Route: 042
     Dates: start: 20160104
  18. PREDNISONE. [Concomitant]
     Active Substance: PREDNISONE
  19. DETROL [Concomitant]
     Active Substance: TOLTERODINE TARTRATE
  20. OXAZEPAM. [Concomitant]
     Active Substance: OXAZEPAM
  21. CLONIDINE. [Concomitant]
     Active Substance: CLONIDINE
  22. EFFEXOR [Concomitant]
     Active Substance: VENLAFAXINE HYDROCHLORIDE
  23. DOCUSATE [Concomitant]
     Active Substance: DOCUSATE
  24. AZOPT [Concomitant]
     Active Substance: BRINZOLAMIDE
  25. SYNTHROID [Concomitant]
     Active Substance: LEVOTHYROXINE SODIUM
  26. LEVOCARB [Concomitant]
     Active Substance: CARBIDOPA\LEVODOPA
  27. HCTZ [Concomitant]
     Active Substance: HYDROCHLOROTHIAZIDE
  28. ACETYLSALICYLIC ACID [Concomitant]
     Active Substance: ASPIRIN
  29. METOPROLOL. [Concomitant]
     Active Substance: METOPROLOL

REACTIONS (8)
  - Rheumatoid arthritis [Not Recovered/Not Resolved]
  - Kidney infection [Unknown]
  - Urinary tract infection [Not Recovered/Not Resolved]
  - Dysuria [Not Recovered/Not Resolved]
  - Arthralgia [Not Recovered/Not Resolved]
  - Bile duct obstruction [Not Recovered/Not Resolved]
  - Intestinal polyp [Not Recovered/Not Resolved]
  - Prostatic disorder [Unknown]
